FAERS Safety Report 10368098 (Version 3)
Quarter: 2014Q3

REPORT INFORMATION
  Report Type: Spontaneous
  Country: HR (occurrence: HR)
  Receive Date: 20140807
  Receipt Date: 20140919
  Transmission Date: 20150326
  Serious: Yes (Hospitalization, Other)
  Sender: FDA-Public Use
  Company Number: HR-NOVOPROD-418155

PATIENT
  Age: 56 Year
  Sex: Male

DRUGS (10)
  1. ATORIS [Concomitant]
     Active Substance: ATORVASTATIN CALCIUM
     Dosage: 20 MG, QD (1 TABLET IN THE EVENING)
     Route: 065
  2. NORPREXANIL [Concomitant]
     Active Substance: UNSPECIFIED INGREDIENT
     Dosage: 5.5 MG, QD (1 TABLET IN THE EVENING)
     Route: 065
  3. ATORVOX [Concomitant]
     Dosage: UNK
     Dates: end: 20140714
  4. BISOBEL [Concomitant]
     Dosage: 5 MG, BID
     Route: 065
  5. SIOFOR [Concomitant]
     Active Substance: METFORMIN HYDROCHLORIDE
     Indication: TYPE 2 DIABETES MELLITUS
     Dosage: 1000 MG, QD (1+ 1 + 1 TABLET)
     Route: 048
     Dates: start: 2002, end: 20140714
  6. MARTEFARIN [Concomitant]
     Active Substance: WARFARIN
     Indication: ATRIAL FIBRILLATION
     Dosage: 7 MG, QD (2X1 TABLETS)
     Route: 048
     Dates: start: 2014
  7. LOSARTIC [Concomitant]
     Active Substance: LOSARTAN POTASSIUM
     Dosage: 50 MG, BID (1 + 1 + 0 TABLETS)
     Route: 065
  8. KORDOBIS [Concomitant]
     Active Substance: BISOPROLOL FUMARATE
     Dosage: 2.5 MG, BID (1 + 1 + 0 TABLETS)
     Route: 065
  9. VICTOZA [Suspect]
     Active Substance: LIRAGLUTIDE
     Indication: TYPE 2 DIABETES MELLITUS
     Dosage: 1.2 MG, QD
     Route: 065
     Dates: start: 20140611, end: 20140714
  10. NITROGLYCERINE [Concomitant]
     Active Substance: NITROGLYCERIN
     Dosage: SPRAY, PP. (AS NEEDED)
     Route: 065

REACTIONS (1)
  - Drug-induced liver injury [Recovering/Resolving]

NARRATIVE: CASE EVENT DATE: 20140711
